FAERS Safety Report 19256433 (Version 1)
Quarter: 2021Q2

REPORT INFORMATION
  Report Type: Spontaneous
  Country: HU (occurrence: HU)
  Receive Date: 20210513
  Receipt Date: 20210513
  Transmission Date: 20210717
  Serious: Yes (Other)
  Sender: FDA-Public Use
  Company Number: HU-PFIZER INC-2021480869

PATIENT
  Age: 47 Year
  Sex: Female

DRUGS (3)
  1. TAMOXIFEN [Concomitant]
     Active Substance: TAMOXIFEN
     Indication: BREAST NEOPLASM
     Route: 065
     Dates: start: 2012, end: 201804
  2. CYCLOPHOSPHAMIDE. [Suspect]
     Active Substance: CYCLOPHOSPHAMIDE
     Indication: BREAST NEOPLASM
     Dosage: UNK
     Route: 065
     Dates: start: 2012
  3. DOXORUBICIN HCL [Suspect]
     Active Substance: DOXORUBICIN HYDROCHLORIDE
     Indication: BREAST NEOPLASM
     Dosage: UNK
     Route: 065
     Dates: start: 2012

REACTIONS (5)
  - Neoplasm progression [Unknown]
  - Hydrothorax [Unknown]
  - Hypoaesthesia [Recovered/Resolved]
  - Neoplasm progression [Unknown]
  - Hypoaesthesia [Recovering/Resolving]

NARRATIVE: CASE EVENT DATE: 202003
